FAERS Safety Report 20720597 (Version 8)
Quarter: 2022Q3

REPORT INFORMATION
  Report Type: Spontaneous
  Country: GB (occurrence: GB)
  Receive Date: 20220418
  Receipt Date: 20220715
  Transmission Date: 20221027
  Serious: Yes (Other)
  Sender: FDA-Public Use
  Company Number: GB-MYLANLABS-2022M1016748

PATIENT
  Age: 51 Year
  Sex: Female

DRUGS (1)
  1. CLOZARIL [Suspect]
     Active Substance: CLOZAPINE
     Indication: Schizophrenia
     Dosage: UNK
     Route: 048
     Dates: start: 20190131

REACTIONS (7)
  - Hallucination [Unknown]
  - Thrombocytopenia [Recovering/Resolving]
  - White blood cell count decreased [Not Recovered/Not Resolved]
  - Seizure [Unknown]
  - Neutropenia [Not Recovered/Not Resolved]
  - Malaise [Unknown]
  - Neutrophil count decreased [Not Recovered/Not Resolved]

NARRATIVE: CASE EVENT DATE: 20220228
